FAERS Safety Report 4310061-6 (Version None)
Quarter: 2004Q1

REPORT INFORMATION
  Report Type: 
  Country: None (occurrence: None)
  Receive Date: 20040301
  Receipt Date: 20031107
  Transmission Date: 20041129
  Serious: No
  Sender: FDA-Public Use
  Company Number: WAES0308USA02124

PATIENT
  Age: 63 Year
  Sex: Female
  Weight: 61.6892 kg

DRUGS (9)
  1. ZETIA [Suspect]
     Indication: HYPERCHOLESTEROLAEMIA
     Dosage: 10 MG/HS/PO
     Route: 048
     Dates: start: 20030723, end: 20030726
  2. ACTONEL [Concomitant]
  3. BELLAMINE S [Concomitant]
  4. CLARITIN [Concomitant]
  5. MS CONTIN [Concomitant]
  6. PAXIL [Concomitant]
  7. ULTRAM [Concomitant]
  8. ASPIRIN [Concomitant]
  9. FOLIC ACID [Concomitant]

REACTIONS (2)
  - ABDOMINAL PAIN [None]
  - VOMITING [None]
